FAERS Safety Report 21179337 (Version 4)
Quarter: 2024Q4

REPORT INFORMATION
  Report Type: Spontaneous
  Country: US (occurrence: US)
  Receive Date: 20220805
  Receipt Date: 20241025
  Transmission Date: 20250114
  Serious: Yes (Other)
  Sender: PFIZER
  Company Number: US-PFIZER INC-PV202200037066

PATIENT
  Age: 65 Year
  Sex: Male

DRUGS (16)
  1. CARBOPLATIN [Suspect]
     Active Substance: CARBOPLATIN
     Indication: Non-small cell lung cancer metastatic
     Dosage: UNK, 2 CYCLES
  2. CARBOPLATIN [Suspect]
     Active Substance: CARBOPLATIN
     Indication: Metastases to bone
  3. CARBOPLATIN [Suspect]
     Active Substance: CARBOPLATIN
     Indication: Sarcomatoid carcinoma of the lung
  4. CARBOPLATIN [Suspect]
     Active Substance: CARBOPLATIN
     Indication: Metastases to adrenals
  5. CARBOPLATIN [Suspect]
     Active Substance: CARBOPLATIN
     Indication: Metastases to liver
  6. PEMETREXED [Suspect]
     Active Substance: PEMETREXED
     Indication: Non-small cell lung cancer
     Dosage: UNK, 2 CYCLES
  7. PEMETREXED [Suspect]
     Active Substance: PEMETREXED
     Indication: Metastases to adrenals
  8. PEMETREXED [Suspect]
     Active Substance: PEMETREXED
     Indication: Metastases to bone
  9. PEMETREXED [Suspect]
     Active Substance: PEMETREXED
     Indication: Metastases to liver
  10. PEMETREXED [Suspect]
     Active Substance: PEMETREXED
     Indication: Sarcomatoid carcinoma of the lung
  11. PEMBROLIZUMAB [Suspect]
     Active Substance: PEMBROLIZUMAB
     Indication: Non-small cell lung cancer
     Dosage: UNK, 2 CYCLES
  12. PEMBROLIZUMAB [Suspect]
     Active Substance: PEMBROLIZUMAB
     Indication: Non-small cell lung cancer metastatic
  13. PEMBROLIZUMAB [Suspect]
     Active Substance: PEMBROLIZUMAB
     Indication: Metastases to adrenals
  14. PEMBROLIZUMAB [Suspect]
     Active Substance: PEMBROLIZUMAB
     Indication: Metastases to bone
  15. PEMBROLIZUMAB [Suspect]
     Active Substance: PEMBROLIZUMAB
     Indication: Metastases to liver
  16. PEMBROLIZUMAB [Suspect]
     Active Substance: PEMBROLIZUMAB
     Indication: Sarcomatoid carcinoma of the lung

REACTIONS (1)
  - Toxicity to various agents [Recovered/Resolved]
